FAERS Safety Report 6912696-0 (Version None)
Quarter: 2010Q3

REPORT INFORMATION
  Report Type: 
  Country: None (occurrence: None)
  Receive Date: 20100806
  Receipt Date: 20081007
  Transmission Date: 20110219
  Serious: Yes (Other)
  Sender: FDA-Public Use
  Company Number: US-PFIZER INC-2008064764

PATIENT
  Sex: Female
  Weight: 54.9 kg

DRUGS (3)
  1. VFEND [Suspect]
     Indication: PNEUMONIA FUNGAL
     Route: 042
  2. IDARUBICIN HCL [Concomitant]
     Dates: start: 20080528, end: 20080603
  3. CYTARABINE [Concomitant]
     Dates: start: 20080528, end: 20080603

REACTIONS (12)
  - ALANINE AMINOTRANSFERASE INCREASED [None]
  - ASPARTATE AMINOTRANSFERASE INCREASED [None]
  - BILIRUBIN CONJUGATED INCREASED [None]
  - BLOOD ALBUMIN DECREASED [None]
  - BLOOD ALKALINE PHOSPHATASE INCREASED [None]
  - BLOOD BILIRUBIN INCREASED [None]
  - BLOOD CREATININE DECREASED [None]
  - BLOOD GLUCOSE INCREASED [None]
  - BLOOD LACTATE DEHYDROGENASE DECREASED [None]
  - BLOOD SODIUM DECREASED [None]
  - HEPATIC ENZYME INCREASED [None]
  - PROTEIN TOTAL DECREASED [None]
